FAERS Safety Report 12498909 (Version 1)
Quarter: 2016Q2

REPORT INFORMATION
  Report Type: Spontaneous
  Country: US (occurrence: US)
  Receive Date: 20160627
  Receipt Date: 20160627
  Transmission Date: 20160815
  Serious: Yes (Other)
  Sender: FDA-Public Use
  Company Number: US-TEVA-586077USA

PATIENT
  Age: 52 Year
  Sex: Female

DRUGS (2)
  1. ANASTROZOLE. [Suspect]
     Active Substance: ANASTROZOLE
     Indication: BREAST CANCER
     Route: 065
     Dates: start: 201410, end: 20150807
  2. HERCEPTIN [Concomitant]
     Active Substance: TRASTUZUMAB
     Indication: BREAST CANCER
     Route: 065
     Dates: start: 201410, end: 20150807

REACTIONS (7)
  - Invasive ductal breast carcinoma [Not Recovered/Not Resolved]
  - Neuropathy peripheral [Unknown]
  - Dyspepsia [Unknown]
  - White blood cell count abnormal [Unknown]
  - Anaemia [Unknown]
  - Fatigue [Unknown]
  - Hot flush [Unknown]

NARRATIVE: CASE EVENT DATE: 201507
